FAERS Safety Report 4344757-7 (Version None)
Quarter: 2004Q2

REPORT INFORMATION
  Report Type: 
  Country: None (occurrence: None)
  Receive Date: 20040423
  Receipt Date: 20040415
  Transmission Date: 20050107
  Serious: Yes (Other)
  Sender: FDA-Public Use
  Company Number: PHNU2004DE01522

PATIENT
  Age: 33 Year
  Sex: Female

DRUGS (2)
  1. METHERGINE [Suspect]
     Indication: MALAISE
     Dosage: 1 DF, TID
     Route: 048
     Dates: start: 20040412, end: 20040413
  2. METHERGINE [Suspect]
     Dosage: 1 DF, QD
     Route: 048
     Dates: start: 20040414

REACTIONS (3)
  - DRUG EXPOSURE DURING PREGNANCY [None]
  - FOETAL GROWTH RETARDATION [None]
  - SMALL FOR DATES BABY [None]
